FAERS Safety Report 9366134 (Version 1)
Quarter: 2013Q2

REPORT INFORMATION
  Report Type: Spontaneous
  Country: NO (occurrence: NO)
  Receive Date: 20130625
  Receipt Date: 20130625
  Transmission Date: 20140414
  Serious: Yes (Hospitalization)
  Sender: FDA-Public Use
  Company Number: NO-PFIZER INC-2004039086

PATIENT
  Age: 74 Year
  Sex: Male

DRUGS (10)
  1. LIPITOR [Suspect]
     Indication: HYPERCHOLESTEROLAEMIA
     Dosage: 20 MG, 1X/DAY
     Route: 048
     Dates: start: 20020511, end: 20040511
  2. DAONIL [Suspect]
     Indication: DIABETES MELLITUS
     Dosage: 1.75 MG, 1X/DAY
     Route: 048
     Dates: start: 20040428, end: 20040511
  3. CORDARONE [Suspect]
     Indication: ATRIAL FIBRILLATION
     Dosage: 200 MG, 1X/DAY
     Route: 048
     Dates: start: 20020428, end: 20040511
  4. WARFARIN [Concomitant]
     Route: 048
  5. DIGITOXIN [Concomitant]
  6. FUROSEMIDE [Concomitant]
     Route: 048
  7. KALEORID [Concomitant]
     Route: 048
  8. LISINOPRIL [Concomitant]
     Route: 048
  9. METOPROLOL SUCCINATE [Concomitant]
     Route: 048
  10. CALCIUM CHLORIDE ANHYDROUS/CALCIUM CHLORIDE DIHYDRATE [Concomitant]

REACTIONS (3)
  - Hepatic failure [Recovering/Resolving]
  - Renal failure [Recovering/Resolving]
  - Dyspnoea [Recovering/Resolving]
